FAERS Safety Report 5697128-5 (Version None)
Quarter: 2008Q2

REPORT INFORMATION
  Report Type: 
  Country: None (occurrence: None)
  Receive Date: 20080408
  Receipt Date: 20080328
  Transmission Date: 20081010
  Serious: Yes (Hospitalization)
  Sender: FDA-Public Use
  Company Number: ES-ELI_LILLY_AND_COMPANY-ES200803006656

PATIENT
  Age: 63 Year
  Sex: Female

DRUGS (4)
  1. FORTEO [Suspect]
     Indication: OSTEOPOROSIS
     Dosage: 20 UG, UNK
     Route: 058
     Dates: start: 20080301
  2. ZYPREXA [Suspect]
     Indication: BIPOLAR DISORDER
  3. ADOFEN [Concomitant]
     Indication: DEPRESSION
  4. DIAZEPAM [Concomitant]

REACTIONS (3)
  - ARTHRALGIA [None]
  - DISCOMFORT [None]
  - FEMUR FRACTURE [None]
